FAERS Safety Report 25480240 (Version 1)
Quarter: 2025Q2

REPORT INFORMATION
  Report Type: Spontaneous
  Country: GB (occurrence: GB)
  Receive Date: 20250625
  Receipt Date: 20250625
  Transmission Date: 20250717
  Serious: Yes (Disabling, Other)
  Sender: MYLAN
  Company Number: None

PATIENT
  Sex: Female
  Weight: 55 kg

DRUGS (12)
  1. CANDESARTAN [Suspect]
     Active Substance: CANDESARTAN
     Indication: Migraine
  2. CANDESARTAN [Suspect]
     Active Substance: CANDESARTAN
     Route: 065
  3. CANDESARTAN [Suspect]
     Active Substance: CANDESARTAN
     Route: 065
  4. CANDESARTAN [Suspect]
     Active Substance: CANDESARTAN
  5. LORATADINE [Concomitant]
     Active Substance: LORATADINE
     Indication: Seasonal allergy
  6. LORATADINE [Concomitant]
     Active Substance: LORATADINE
     Indication: Allergy to plants
     Route: 065
  7. LORATADINE [Concomitant]
     Active Substance: LORATADINE
     Route: 065
  8. LORATADINE [Concomitant]
     Active Substance: LORATADINE
  9. CETIRIZINE HYDROCHLORIDE [Concomitant]
     Active Substance: CETIRIZINE HYDROCHLORIDE
     Indication: Seasonal allergy
  10. CETIRIZINE HYDROCHLORIDE [Concomitant]
     Active Substance: CETIRIZINE HYDROCHLORIDE
     Indication: Allergy to plants
     Route: 065
  11. CETIRIZINE HYDROCHLORIDE [Concomitant]
     Active Substance: CETIRIZINE HYDROCHLORIDE
     Route: 065
  12. CETIRIZINE HYDROCHLORIDE [Concomitant]
     Active Substance: CETIRIZINE HYDROCHLORIDE

REACTIONS (5)
  - Muscular weakness [Not Recovered/Not Resolved]
  - Nausea [Not Recovered/Not Resolved]
  - Dizziness [Not Recovered/Not Resolved]
  - Fatigue [Not Recovered/Not Resolved]
  - Brain fog [Not Recovered/Not Resolved]
